FAERS Safety Report 5419200-7 (Version None)
Quarter: 2007Q3

REPORT INFORMATION
  Report Type: 
  Country: None (occurrence: None)
  Receive Date: 20070816
  Receipt Date: 20070816
  Transmission Date: 20080115
  Serious: No
  Sender: FDA-Public Use
  Company Number: None

PATIENT

DRUGS (4)
  1. TENORMIN [Suspect]
     Indication: HYPERTENSION
     Dosage: TENORMIN 50MG DAILY
  2. POTASSIUM CHLORIDE [Concomitant]
  3. ORAL HYPOGLYCEMIC [Concomitant]
  4. UROSODIAL [Concomitant]

REACTIONS (2)
  - BLOOD PRESSURE INADEQUATELY CONTROLLED [None]
  - BLOOD PRESSURE INCREASED [None]
